FAERS Safety Report 8565592-X (Version None)
Quarter: 2012Q3

REPORT INFORMATION
  Report Type: 
  Country: None (occurrence: None)
  Receive Date: 20120803
  Receipt Date: 20120725
  Transmission Date: 20120928
  Serious: Yes (Hospitalization)
  Sender: FDA-Public Use
  Company Number: US-CELGENEUS-163-21880-12072763

PATIENT
  Age: 63 Year
  Sex: Male

DRUGS (7)
  1. INSULIN INSULATARD NPH NORDISK [Concomitant]
     Dosage: 9-12 UNITS
     Route: 065
  2. LISINOPRIL [Concomitant]
     Dosage: 20 MILLIGRAM
     Route: 065
  3. DEXAMETHASONE [Suspect]
     Indication: MULTIPLE MYELOMA
     Dosage: 5.7143 MILLIGRAM
     Route: 065
  4. REVLIMID [Suspect]
     Indication: MULTIPLE MYELOMA
     Dosage: 15 OR 25 MG
     Route: 048
  5. METFORMIN HCL [Concomitant]
     Route: 065
  6. LISINOPRIL [Concomitant]
     Dosage: 10 MILLIGRAM
     Route: 065
  7. ASPIRIN [Concomitant]
     Indication: PROPHYLAXIS
     Dosage: 81 OR 325 MG
     Route: 065

REACTIONS (1)
  - HYPERGLYCAEMIA [None]
